FAERS Safety Report 20730148 (Version 1)
Quarter: 2022Q2

REPORT INFORMATION
  Report Type: Spontaneous
  Country: RU (occurrence: None)
  Receive Date: 20220420
  Receipt Date: 20220420
  Transmission Date: 20220721
  Serious: Yes (Hospitalization)
  Sender: FDA-Public Use
  Company Number: 2022A153774

PATIENT
  Sex: Male

DRUGS (2)
  1. PULMICORT TURBUHALER [Suspect]
     Active Substance: BUDESONIDE
     Indication: Asthma
     Route: 055
  2. ATROVENT [Concomitant]
     Active Substance: IPRATROPIUM BROMIDE

REACTIONS (2)
  - Tachycardia [Recovered/Resolved]
  - Blood pressure increased [Recovered/Resolved]
